FAERS Safety Report 21896519 (Version 2)
Quarter: 2023Q1

REPORT INFORMATION
  Report Type: Spontaneous
  Country: US (occurrence: US)
  Receive Date: 20230123
  Receipt Date: 20230126
  Transmission Date: 20230417
  Serious: No
  Sender: FDA-Public Use
  Company Number: US-BRISTOL-MYERS SQUIBB COMPANY-2023-009249

PATIENT
  Age: 72 Year
  Sex: Male

DRUGS (1)
  1. REVLIMID [Suspect]
     Active Substance: LENALIDOMIDE
     Indication: Plasma cell myeloma
     Dosage: FREQ: !4 DAYS ON AND 7 DAYS OFF.?ONGOING
     Route: 048
     Dates: start: 20221128

REACTIONS (4)
  - Herpes zoster [Unknown]
  - Peripheral swelling [Unknown]
  - Anaemia [Unknown]
  - Off label use [Unknown]
